FAERS Safety Report 5082198-8 (Version None)
Quarter: 2006Q3

REPORT INFORMATION
  Report Type: 
  Country: None (occurrence: None)
  Receive Date: 20060815
  Receipt Date: 20060815
  Transmission Date: 20061208
  Serious: Yes (Hospitalization)
  Sender: FDA-Public Use
  Company Number: None

PATIENT
  Sex: Male

DRUGS (2)
  1. BEVACIZUMAB 10MG/ KG IV Q 2 WEEKS [Suspect]
     Indication: SQUAMOUS CELL CARCINOMA
  2. SEE HPI [Concomitant]

REACTIONS (6)
  - BODY TEMPERATURE INCREASED [None]
  - HICCUPS [None]
  - MUCOSAL INFLAMMATION [None]
  - ODYNOPHAGIA [None]
  - PNEUMONIA ASPIRATION [None]
  - URINARY TRACT INFECTION [None]
